FAERS Safety Report 15842970 (Version 3)
Quarter: 2019Q1

REPORT INFORMATION
  Report Type: Spontaneous
  Country: US (occurrence: US)
  Receive Date: 20190118
  Receipt Date: 20190205
  Transmission Date: 20190417
  Serious: Yes (Other)
  Sender: FDA-Public Use
  Company Number: US-HORIZON-PEN-0040-2019

PATIENT
  Age: 75 Year
  Sex: Female

DRUGS (9)
  1. SYNTHROID [Concomitant]
     Active Substance: LEVOTHYROXINE SODIUM
  2. MAXZIDE [Concomitant]
     Active Substance: HYDROCHLOROTHIAZIDE\TRIAMTERENE
  3. PRAZOSIN. [Concomitant]
     Active Substance: PRAZOSIN
  4. BUPROPION. [Concomitant]
     Active Substance: BUPROPION
  5. VESICARE [Concomitant]
     Active Substance: SOLIFENACIN SUCCINATE
  6. ACTONEL [Concomitant]
     Active Substance: RISEDRONATE SODIUM
  7. LIPITOR [Concomitant]
     Active Substance: ATORVASTATIN CALCIUM
  8. PENNSAID [Suspect]
     Active Substance: DICLOFENAC SODIUM
     Indication: SCIATICA
     Dosage: 2 PUMPS BID
     Dates: start: 20171016, end: 20181129
  9. SKELAXIN [Concomitant]
     Active Substance: METAXALONE

REACTIONS (2)
  - Off label use [Unknown]
  - Renal failure [Not Recovered/Not Resolved]

NARRATIVE: CASE EVENT DATE: 20181129
